FAERS Safety Report 14208000 (Version 4)
Quarter: 2017Q4

REPORT INFORMATION
  Report Type: Spontaneous
  Country: BR (occurrence: BR)
  Receive Date: 20171121
  Receipt Date: 20171229
  Transmission Date: 20180321
  Serious: Yes (Other)
  Sender: FDA-Public Use
  Company Number: PHHY2017BR170211

PATIENT
  Sex: Male
  Weight: 62 kg

DRUGS (5)
  1. TRAVATAN Z [Suspect]
     Active Substance: TRAVOPROST
     Indication: GLAUCOMA
     Dosage: 1 GTT, QD
     Route: 047
  2. AZOPT [Suspect]
     Active Substance: BRINZOLAMIDE
     Indication: GLAUCOMA
     Route: 047
  3. TRAVOPROSTA [Suspect]
     Active Substance: TRAVOPROST
     Indication: GLAUCOMA
     Route: 047
  4. TIMOLOL. [Suspect]
     Active Substance: TIMOLOL
     Indication: GLAUCOMA
     Route: 047
  5. BRIMONIDINE [Suspect]
     Active Substance: BRIMONIDINE TARTRATE
     Indication: GLAUCOMA
     Route: 047

REACTIONS (5)
  - Glaucoma [Recovering/Resolving]
  - Product storage error [Unknown]
  - Product packaging quantity issue [Unknown]
  - Cataract [Not Recovered/Not Resolved]
  - Visual impairment [Unknown]
